FAERS Safety Report 5731710-1 (Version None)
Quarter: 2008Q2

REPORT INFORMATION
  Report Type: 
  Country: None (occurrence: None)
  Receive Date: 20080506
  Receipt Date: 20080430
  Transmission Date: 20081010
  Serious: Yes (Other)
  Sender: FDA-Public Use
  Company Number: 19215

PATIENT
  Age: 66 Year
  Sex: Female

DRUGS (1)
  1. CARBOPLATIN [Suspect]
     Indication: OVARIAN CANCER
     Dosage: 50 MG IV
     Route: 042
     Dates: start: 20080429

REACTIONS (3)
  - ANXIETY [None]
  - PARAESTHESIA ORAL [None]
  - PHARYNGEAL OEDEMA [None]
